FAERS Safety Report 26183919 (Version 1)
Quarter: 2025Q4

REPORT INFORMATION
  Report Type: Report from Study
  Country: US (occurrence: US)
  Receive Date: 20251222
  Receipt Date: 20251222
  Transmission Date: 20260117
  Serious: Yes (Hospitalization)
  Sender: ABBVIE
  Company Number: US-ABBVIE-6598843

PATIENT
  Age: 60 Year
  Sex: Male

DRUGS (1)
  1. SKYRIZI [Suspect]
     Active Substance: RISANKIZUMAB-RZAA
     Indication: Product used for unknown indication
     Route: 058
     Dates: start: 20220901

REACTIONS (6)
  - Localised infection [Recovering/Resolving]
  - Blood potassium increased [Recovering/Resolving]
  - Blood sodium decreased [Recovering/Resolving]
  - Hypotension [Unknown]
  - Wound secretion [Unknown]
  - Myiasis [Unknown]

NARRATIVE: CASE EVENT DATE: 20251130
